FAERS Safety Report 6155018-8 (Version None)
Quarter: 2009Q2

REPORT INFORMATION
  Report Type: 
  Country: None (occurrence: None)
  Receive Date: 20090410
  Receipt Date: 20090407
  Transmission Date: 20091009
  Serious: Yes (Death, Other)
  Sender: FDA-Public Use
  Company Number: 2009SP001006

PATIENT
  Age: 46 Year
  Sex: Male

DRUGS (9)
  1. TEMODAL [Suspect]
     Dosage: PO; 150 MG/M2;QD;PO
     Route: 048
     Dates: start: 20070904, end: 20070908
  2. TEMODAL [Suspect]
     Dosage: PO; 150 MG/M2;QD;PO
     Route: 048
     Dates: start: 20061201
  3. MAALOX (CON.) [Concomitant]
  4. OMEPRAL (CON.) [Concomitant]
  5. PHENOBAL (CON.) [Concomitant]
  6. RINDERON (CON.) [Concomitant]
  7. MAGLAX (CON.) [Concomitant]
  8. SEPAMIT-R (CON.) [Concomitant]
  9. BISOLVON (CON.) [Concomitant]

REACTIONS (4)
  - ALANINE AMINOTRANSFERASE INCREASED [None]
  - GAMMA-GLUTAMYLTRANSFERASE INCREASED [None]
  - GLIOBLASTOMA MULTIFORME [None]
  - MALIGNANT NEOPLASM PROGRESSION [None]
